FAERS Safety Report 19188037 (Version 1)
Quarter: 2021Q2

REPORT INFORMATION
  Report Type: Spontaneous
  Country: US (occurrence: US)
  Receive Date: 20210428
  Receipt Date: 20210428
  Transmission Date: 20210717
  Serious: Yes (Other)
  Sender: FDA-Public Use
  Company Number: US-AMGEN-USASP2021063433

PATIENT
  Age: 88 Year
  Sex: Female

DRUGS (3)
  1. IMLYGIC [Suspect]
     Active Substance: TALIMOGENE LAHERPAREPVEC
     Indication: MALIGNANT MELANOMA
     Dosage: UNK, 1ML OF 10^6 TO LEG AND 3ML OF 10^6 TO ARM
     Route: 026
     Dates: start: 20210115
  2. IMLYGIC [Suspect]
     Active Substance: TALIMOGENE LAHERPAREPVEC
     Dosage: UNK, 1ML OF 10^8 TO LEG AND 3ML OF 10^8 TO ARM
     Route: 026
     Dates: start: 20210224
  3. IMLYGIC [Suspect]
     Active Substance: TALIMOGENE LAHERPAREPVEC
     Dosage: UNK, 1ML OF 10^8 TO LEG AND 3ML OF 10^8 TO ARM
     Route: 026
     Dates: start: 20210324, end: 20210324

REACTIONS (1)
  - Malignant melanoma [Unknown]

NARRATIVE: CASE EVENT DATE: 20210422
